FAERS Safety Report 4872776-0 (Version None)
Quarter: 2006Q1

REPORT INFORMATION
  Report Type: 
  Country: None (occurrence: None)
  Receive Date: 20060105
  Receipt Date: 20051209
  Transmission Date: 20060701
  Serious: Yes (Other)
  Sender: FDA-Public Use
  Company Number: CA-BRISTOL-MYERS SQUIBB COMPANY-13218383

PATIENT
  Age: 77 Year
  Sex: Female

DRUGS (2)
  1. TEQUIN [Suspect]
  2. DIABETA [Suspect]

REACTIONS (1)
  - HYPOGLYCAEMIA [None]
